FAERS Safety Report 10977631 (Version 1)
Quarter: 2015Q2

REPORT INFORMATION
  Report Type: Spontaneous
  Country: US (occurrence: None)
  Receive Date: 20150401
  Receipt Date: 20150401
  Transmission Date: 20150821
  Serious: Yes (Other)
  Sender: FDA-Public Use
  Company Number: None

PATIENT
  Age: 50 Year
  Sex: Female
  Weight: 81.65 kg

DRUGS (3)
  1. TOPEROL [Concomitant]
  2. HYDROXYZINE  HCL [Suspect]
     Active Substance: HYDROXYZINE HYDROCHLORIDE
     Indication: RASH PRURITIC
     Dosage: 2
     Route: 048
     Dates: start: 20150220, end: 20150312
  3. SYNTHROID [Concomitant]
     Active Substance: LEVOTHYROXINE SODIUM

REACTIONS (6)
  - Psychotic disorder [None]
  - Delirium [None]
  - Impaired work ability [None]
  - Accidental overdose [None]
  - Family stress [None]
  - Mania [None]

NARRATIVE: CASE EVENT DATE: 20150310
